FAERS Safety Report 7635936-1 (Version None)
Quarter: 2011Q3

REPORT INFORMATION
  Report Type: 
  Country: None (occurrence: None)
  Receive Date: 20110719
  Receipt Date: 20110704
  Transmission Date: 20111222
  Serious: Yes (Other)
  Sender: FDA-Public Use
  Company Number: LTI2011A00182

PATIENT
  Age: 59 Year
  Sex: Male

DRUGS (7)
  1. RAMIPRIL [Concomitant]
  2. ASPIRIN [Concomitant]
  3. ACTOS [Suspect]
     Indication: TYPE 2 DIABETES MELLITUS
     Dosage: 30 MG (30 MG, 1 IN 1 D), ORAL
     Route: 048
     Dates: start: 20070618, end: 20090113
  4. TENORMIN [Concomitant]
  5. CRESTOR [Concomitant]
  6. PIOGLITAZONE HYDROCHLORIDE/METFORMIN HYDROCHLORIDE [Suspect]
     Indication: TYPE 2 DIABETES MELLITUS
     Dosage: 2 TAB. (1 TAB., 2 IN 1 D) ORAL
     Route: 048
     Dates: start: 20090113, end: 20110621
  7. AMARYL [Concomitant]

REACTIONS (2)
  - HAEMATURIA [None]
  - BLADDER TRANSITIONAL CELL CARCINOMA [None]
